FAERS Safety Report 10246814 (Version 1)
Quarter: 2014Q2

REPORT INFORMATION
  Report Type: Spontaneous
  Country: DE (occurrence: IE)
  Receive Date: 20140619
  Receipt Date: 20140619
  Transmission Date: 20141212
  Serious: No
  Sender: FDA-Public Use
  Company Number: IE-MERZ NORTH AMERICA, INC.-14MRZ-00228

PATIENT
  Age: 48 Year
  Sex: Female

DRUGS (10)
  1. XEOMIN [Suspect]
     Indication: PRODUCT USED FOR UNKNOWN INDICATION
     Dates: start: 20140501, end: 20140501
  2. PIRITON [Concomitant]
     Indication: OCULAR HYPERAEMIA
     Dosage: UNKNOWN TABLET
     Route: 048
  3. PIRITON [Concomitant]
     Indication: URTICARIA
  4. PIRITON [Concomitant]
     Indication: INJECTION SITE WARMTH
  5. PIRITON [Concomitant]
     Indication: EYE INFLAMMATION
  6. PIRITON [Concomitant]
     Indication: PRURITUS
  7. STERIOD [Concomitant]
     Indication: SWELLING
     Dosage: UNKNOWN
  8. STERIOD [Concomitant]
     Indication: VIITH NERVE PARALYSIS
  9. ANTIBOTICS [Concomitant]
     Indication: VIITH NERVE PARALYSIS
     Dosage: UNKNOWN
  10. ANTIBOTICS [Concomitant]
     Indication: SWELLING

REACTIONS (12)
  - Erythema [None]
  - Urticaria [None]
  - Injection site warmth [None]
  - Swelling [None]
  - Ocular hyperaemia [None]
  - VIIth nerve paralysis [None]
  - Pruritus [None]
  - Eye inflammation [None]
  - Stress [None]
  - Hypersensitivity [None]
  - Hypersensitivity [None]
  - Anxiety [None]
